FAERS Safety Report 6732146-7 (Version None)
Quarter: 2010Q2

REPORT INFORMATION
  Report Type: 
  Country: None (occurrence: None)
  Receive Date: 20100519
  Receipt Date: 20100511
  Transmission Date: 20101027
  Serious: Yes (Hospitalization)
  Sender: FDA-Public Use
  Company Number: ES-SANOFI-AVENTIS-2010SA027042

PATIENT
  Age: 73 Year
  Sex: Male

DRUGS (5)
  1. SEGURIL [Suspect]
     Indication: HYPERTENSION
     Route: 048
     Dates: start: 20081024, end: 20081106
  2. ACETYLSALICYLIC ACID [Suspect]
     Indication: HYPERTENSION
     Route: 048
  3. BISOPROLOL FUMARATE [Suspect]
     Indication: ISCHAEMIC CARDIOMYOPATHY
     Route: 048
     Dates: start: 20060101
  4. MICARDIS HCT [Suspect]
     Indication: THROMBOSIS PROPHYLAXIS
     Route: 048
     Dates: start: 20081024, end: 20081106
  5. NORVASC [Suspect]
     Route: 048
     Dates: start: 20070101

REACTIONS (3)
  - HYPERKALAEMIA [None]
  - NODAL RHYTHM [None]
  - RENAL FAILURE ACUTE [None]
